FAERS Safety Report 8589140-3 (Version None)
Quarter: 2012Q3

REPORT INFORMATION
  Report Type: 
  Country: None (occurrence: None)
  Receive Date: 20120813
  Receipt Date: 20120803
  Transmission Date: 20120928
  Serious: Yes (Other)
  Sender: FDA-Public Use
  Company Number: US-ASTELLAS-2012US006852

PATIENT
  Sex: Male
  Weight: 114 kg

DRUGS (11)
  1. LACTAID [Concomitant]
     Indication: PRODUCT USED FOR UNKNOWN INDICATION
     Dosage: 2-3 TABS PRN
     Route: 048
     Dates: start: 20081029
  2. PROGRAF [Suspect]
     Indication: GRAFT VERSUS HOST DISEASE
  3. COLACE [Concomitant]
     Indication: PRODUCT USED FOR UNKNOWN INDICATION
     Dosage: 100 MG, BID
     Route: 048
     Dates: start: 20081029
  4. ENTOCORT EC [Concomitant]
     Indication: PRODUCT USED FOR UNKNOWN INDICATION
     Dosage: 3 MG, BID
     Route: 048
     Dates: start: 20081029
  5. DAPSONE [Concomitant]
     Indication: ANTIFUNGAL PROPHYLAXIS
     Dosage: 100 MG, UID/QD
     Route: 048
     Dates: start: 20081029
  6. PROGRAF [Suspect]
     Indication: STEM CELL TRANSPLANT
     Dosage: 1 MG, BID
     Route: 048
     Dates: start: 20081029
  7. TAMSULOSIN HCL [Concomitant]
     Indication: PRODUCT USED FOR UNKNOWN INDICATION
     Dosage: 0.4 MG, QHS
     Route: 048
     Dates: start: 20081029
  8. ZOVIRAX                            /00587301/ [Concomitant]
     Indication: ANTIVIRAL PROPHYLAXIS
     Dosage: 400 MG, BID
     Route: 048
     Dates: start: 20081029, end: 20090731
  9. NOXAFIL [Concomitant]
     Indication: PRODUCT USED FOR UNKNOWN INDICATION
     Dosage: 200 MG, QID
     Route: 048
     Dates: start: 20081029
  10. REGLAN [Concomitant]
     Indication: PRODUCT USED FOR UNKNOWN INDICATION
     Dosage: 5 MG, QID
     Route: 048
     Dates: start: 20081029
  11. NORVASC [Concomitant]
     Indication: PRODUCT USED FOR UNKNOWN INDICATION
     Dosage: 10 MG, UID/QD
     Route: 048
     Dates: start: 20081029

REACTIONS (21)
  - HYPOXIA [None]
  - OEDEMA PERIPHERAL [None]
  - OFF LABEL USE [None]
  - TREMOR [None]
  - PNEUMONIA STAPHYLOCOCCAL [None]
  - RENAL FAILURE [None]
  - MYCOBACTERIUM AVIUM COMPLEX INFECTION [None]
  - COUGH [None]
  - MUSCULAR WEAKNESS [None]
  - OBLITERATIVE BRONCHIOLITIS [None]
  - ACUTE RESPIRATORY FAILURE [None]
  - SEPSIS [None]
  - DYSPNOEA EXERTIONAL [None]
  - FLUID RETENTION [None]
  - GRAFT VERSUS HOST DISEASE [None]
  - HYPERKALAEMIA [None]
  - RESPIRATORY DISTRESS [None]
  - FATIGUE [None]
  - BLOOD MAGNESIUM DECREASED [None]
  - HYPERTENSION [None]
  - ALOPECIA [None]
